FAERS Safety Report 6781059-3 (Version None)
Quarter: 2010Q2

REPORT INFORMATION
  Report Type: 
  Country: None (occurrence: None)
  Receive Date: 20100617
  Receipt Date: 20100617
  Transmission Date: 20101027
  Serious: Yes (Death)
  Sender: FDA-Public Use
  Company Number: None

PATIENT
  Age: 80 Year
  Sex: Male
  Weight: 63.5036 kg

DRUGS (1)
  1. ABILIFY [Suspect]
     Indication: AGGRESSION
     Dosage: 1 3X DAILY AND 2 AT BEDTIME
     Dates: start: 20100416, end: 20100601

REACTIONS (6)
  - AGGRESSION [None]
  - COMA [None]
  - DYSPHAGIA [None]
  - FALL [None]
  - HAND FRACTURE [None]
  - OVERDOSE [None]
